FAERS Safety Report 6979103-3 (Version None)
Quarter: 2010Q3

REPORT INFORMATION
  Report Type: 
  Country: None (occurrence: None)
  Receive Date: 20100913
  Receipt Date: 20100831
  Transmission Date: 20110219
  Serious: Yes (Other)
  Sender: FDA-Public Use
  Company Number: PHHY2010JP56160

PATIENT
  Sex: Female
  Weight: 45 kg

DRUGS (5)
  1. FLUVASTATIN [Suspect]
     Indication: DYSLIPIDAEMIA
     Dosage: 20 MG DAILY
     Route: 048
     Dates: start: 20050817, end: 20100720
  2. FLUORESCEIN SODIUM [Interacting]
     Dosage: UNK
     Route: 042
     Dates: start: 20090101, end: 20100705
  3. INDOCYANINE GREEN [Interacting]
     Dosage: UNK
     Route: 042
     Dates: start: 20090101, end: 20100705
  4. CETIRIZINE HYDROCHLORIDE [Concomitant]
     Indication: RHINITIS ALLERGIC
     Dosage: 10 MG
     Route: 048
     Dates: start: 19990927, end: 20100720
  5. CETIRIZINE HYDROCHLORIDE [Concomitant]
     Dosage: UNK

REACTIONS (8)
  - ALANINE AMINOTRANSFERASE INCREASED [None]
  - ASPARTATE AMINOTRANSFERASE INCREASED [None]
  - BLOOD ALKALINE PHOSPHATASE INCREASED [None]
  - CONDITION AGGRAVATED [None]
  - DRUG INTERACTION [None]
  - GAMMA-GLUTAMYLTRANSFERASE INCREASED [None]
  - LIVER DISORDER [None]
  - PHOTOCOAGULATION [None]
